FAERS Safety Report 7349118-4 (Version None)
Quarter: 2011Q1

REPORT INFORMATION
  Report Type: 
  Country: None (occurrence: None)
  Receive Date: 20110303
  Receipt Date: 20110215
  Transmission Date: 20110831
  Serious: Yes (Hospitalization, Other)
  Sender: FDA-Public Use
  Company Number: 2009S1002369

PATIENT
  Age: 69 Year
  Sex: Female
  Weight: 68.0396 kg

DRUGS (13)
  1. ACIPHEX [Concomitant]
  2. VALTREX [Concomitant]
  3. SINGULAIR [Concomitant]
  4. ZOCOR [Concomitant]
  5. PHOSPHOSODA FLAVOR NOT SPECIFIED [Suspect]
     Indication: COLONOSCOPY
     Dosage: 45 ML; X1; PO
     Route: 048
     Dates: start: 20080803, end: 20080804
  6. PHOSPHOSODA FLAVOR NOT SPECIFIED [Suspect]
     Indication: ENDOSCOPY UPPER GASTROINTESTINAL TRACT
     Dosage: 45 ML; X1; PO
     Route: 048
     Dates: start: 20080803, end: 20080804
  7. ACTONEL [Concomitant]
  8. DIOVAN [Concomitant]
  9. WELCHOL [Concomitant]
  10. REGLAN [Concomitant]
  11. NEXIUM [Concomitant]
  12. AMBIEN CR [Concomitant]
  13. SYNTHROID [Concomitant]

REACTIONS (6)
  - PYELONEPHRITIS [None]
  - RENAL FAILURE CHRONIC [None]
  - PYREXIA [None]
  - CHILLS [None]
  - RENAL FAILURE ACUTE [None]
  - URINARY TRACT INFECTION [None]
